FAERS Safety Report 5022048-9 (Version None)
Quarter: 2006Q2

REPORT INFORMATION
  Report Type: 
  Country: None (occurrence: None)
  Receive Date: 20060609
  Receipt Date: 20060517
  Transmission Date: 20061013
  Serious: Yes (Hospitalization)
  Sender: FDA-Public Use
  Company Number: JP-ABBOTT-06P-087-0333487-00

PATIENT
  Sex: Female
  Weight: 6.7 kg

DRUGS (6)
  1. ERYTHROMYCIN (ERYTHROMYCIN ETHYLSUCCINATE ORAL SUSPENSION) [Suspect]
     Indication: LUNG DISORDER
     Route: 048
     Dates: start: 20010326, end: 20020912
  2. L-CARBOCISTEINE [Concomitant]
     Indication: PRODUCTIVE COUGH
     Route: 048
     Dates: start: 20020802
  3. AMBROXOL HYDROCHLORIDE [Concomitant]
     Indication: PRODUCTIVE COUGH
     Route: 048
     Dates: start: 20020802
  4. BIFIDOBACTERIUM [Concomitant]
     Indication: GASTROINTESTINAL DISORDER
     Route: 048
     Dates: start: 20020802
  5. TULOBUTEROL [Concomitant]
     Indication: PROPHYLAXIS AGAINST BRONCHOSPASM
     Route: 048
     Dates: start: 20020802
  6. THEOPHYLLINE [Concomitant]
     Indication: PROPHYLAXIS AGAINST BRONCHOSPASM
     Route: 048
     Dates: start: 20020812

REACTIONS (4)
  - ASTHMA [None]
  - OBSTRUCTION GASTRIC [None]
  - VOMITING [None]
  - WEIGHT DECREASED [None]
